FAERS Safety Report 17052047 (Version 1)
Quarter: 2019Q4

REPORT INFORMATION
  Report Type: Spontaneous
  Country: AU (occurrence: AU)
  Receive Date: 20191120
  Receipt Date: 20191120
  Transmission Date: 20200122
  Serious: Yes (Life-Threatening, Hospitalization, Other)
  Sender: FDA-Public Use
  Company Number: AU-AMGEN-AUSSP2019169816

PATIENT
  Age: 72 Year
  Sex: Female
  Weight: 57 kg

DRUGS (5)
  1. PREDNISONE. [Concomitant]
     Active Substance: PREDNISONE
     Dosage: UNK
  2. ATENOL [Concomitant]
     Active Substance: ATENOLOL
     Indication: HYPERTENSION
     Dosage: 12.5 UNK, BID
  3. CARDIA [Concomitant]
     Active Substance: AJMALINE
     Indication: HYPERTENSION
     Dosage: 100 UNK, QD
  4. DIABEST [Concomitant]
     Dosage: 500 UNK, QD
  5. REPATHA [Suspect]
     Active Substance: EVOLOCUMAB
     Indication: PRODUCT USED FOR UNKNOWN INDICATION
     Dosage: 140 MILLIGRAM, QMO
     Route: 058
     Dates: start: 201009, end: 201907

REACTIONS (6)
  - Hypotension [Unknown]
  - Ascites [Unknown]
  - Hyponatraemia [Unknown]
  - Off label use [Unknown]
  - Cortisol decreased [Unknown]
  - Hypoosmolar state [Unknown]

NARRATIVE: CASE EVENT DATE: 201009
